FAERS Safety Report 18185739 (Version 2)
Quarter: 2024Q3

REPORT INFORMATION
  Report Type: Report from Study
  Country: GB (occurrence: GB)
  Receive Date: 20200824
  Receipt Date: 20240807
  Transmission Date: 20241016
  Serious: Yes (Hospitalization, Other)
  Sender: ROCHE
  Company Number: GB-ROCHE-2281473

PATIENT
  Sex: Female

DRUGS (7)
  1. TOCILIZUMAB [Suspect]
     Active Substance: TOCILIZUMAB
     Indication: Rheumatoid arthritis
     Dosage: 27/SEP/2018
     Route: 058
     Dates: start: 20180921
  2. METHOTREXATE [Concomitant]
     Active Substance: METHOTREXATE
  3. GABAPENTIN [Concomitant]
     Active Substance: GABAPENTIN
  4. COCODAMOL [Concomitant]
     Active Substance: ACETAMINOPHEN\CODEINE PHOSPHATE
  5. TRAMADOL [Concomitant]
     Active Substance: TRAMADOL\TRAMADOL HYDROCHLORIDE
  6. AMBROXOL [Concomitant]
     Active Substance: AMBROXOL
  7. FOLIC ACID [Concomitant]
     Active Substance: FOLIC ACID

REACTIONS (10)
  - Infection [Unknown]
  - Dizziness [Unknown]
  - Urine output increased [Unknown]
  - Gastrointestinal disorder [Unknown]
  - Feeling hot [Unknown]
  - Malaise [Unknown]
  - Gastrointestinal infection [Unknown]
  - Urinary tract infection [Unknown]
  - Urinary tract infection [Unknown]
  - Dyspnoea [Unknown]
